FAERS Safety Report 12261161 (Version 1)
Quarter: 2016Q2

REPORT INFORMATION
  Report Type: Spontaneous
  Country: US (occurrence: US)
  Receive Date: 20160412
  Receipt Date: 20160412
  Transmission Date: 20160815
  Serious: No
  Sender: FDA-Public Use
  Company Number: US-INCYTE CORPORATION-2016IN000052

PATIENT
  Age: 63 Year
  Sex: Female
  Weight: 43 kg

DRUGS (1)
  1. JAKAFI [Suspect]
     Active Substance: RUXOLITINIB
     Indication: LYMPHADENOPATHY
     Dosage: 20 MG, BID
     Route: 048
     Dates: start: 20150819

REACTIONS (3)
  - Weight increased [Recovering/Resolving]
  - Off label use [Unknown]
  - Swelling [Recovering/Resolving]

NARRATIVE: CASE EVENT DATE: 20150819
